FAERS Safety Report 24142945 (Version 2)
Quarter: 2024Q3

REPORT INFORMATION
  Report Type: Spontaneous
  Country: JP (occurrence: JP)
  Receive Date: 20240726
  Receipt Date: 20240904
  Transmission Date: 20241017
  Serious: Yes (Other)
  Sender: OTSUKA
  Company Number: JP-OTSUKA-2024_020462

PATIENT
  Age: 7 Decade
  Sex: Male
  Weight: 71 kg

DRUGS (1)
  1. SAMSCA [Suspect]
     Active Substance: TOLVAPTAN
     Indication: Congenital cystic kidney disease
     Dosage: UNK
     Route: 065

REACTIONS (6)
  - Renal impairment [Unknown]
  - Abdominal hernia [Unknown]
  - Oedema peripheral [Recovered/Resolved]
  - Umbilical hernia [Unknown]
  - Weight increased [Recovering/Resolving]
  - Abdominal distension [Recovering/Resolving]
